FAERS Safety Report 9457260 (Version 1)
Quarter: 2013Q3

REPORT INFORMATION
  Report Type: Spontaneous
  Country: GB (occurrence: GB)
  Receive Date: 20130814
  Receipt Date: 20130814
  Transmission Date: 20140515
  Serious: Yes (Hospitalization, Other)
  Sender: FDA-Public Use
  Company Number: PHFR2013GB004595

PATIENT
  Age: 27 Year
  Sex: Female

DRUGS (3)
  1. TEGRETOL [Suspect]
     Indication: EPILEPSY
     Dosage: 1 DF, BID 200 MG IN MORNING AND 300 MG IN NIGHT
     Route: 048
  2. CITRAZINE [Concomitant]
     Dosage: 10 MG, IN MORNING
  3. FERROUS SULPHATE [Concomitant]

REACTIONS (8)
  - Vaginal haemorrhage [Unknown]
  - Iron deficiency [Unknown]
  - Iron binding capacity total increased [Unknown]
  - Transferrin saturation decreased [Unknown]
  - Serum ferritin decreased [Unknown]
  - Menstruation irregular [Recovered/Resolved]
  - Pruritus [Unknown]
  - Rash [Unknown]
